FAERS Safety Report 4853552-1 (Version None)
Quarter: 2005Q4

REPORT INFORMATION
  Report Type: 
  Country: None (occurrence: None)
  Receive Date: 20051214
  Receipt Date: 20051107
  Transmission Date: 20060501
  Serious: Yes (Other)
  Sender: FDA-Public Use
  Company Number: PHBS2005JP16479

PATIENT
  Age: 22 Year
  Sex: Female

DRUGS (1)
  1. DIOVAN [Suspect]
     Indication: GLOMERULONEPHRITIS
     Dosage: 40 MG, QD
     Route: 048
     Dates: end: 20051107

REACTIONS (2)
  - ABORTION INDUCED [None]
  - DRUG EXPOSURE DURING PREGNANCY [None]
